FAERS Safety Report 10994824 (Version 1)
Quarter: 2015Q2

REPORT INFORMATION
  Report Type: Report from Study
  Country: CA (occurrence: CA)
  Receive Date: 20150407
  Receipt Date: 20150407
  Transmission Date: 20150821
  Serious: Yes (Disabling, Other)
  Sender: FDA-Public Use
  Company Number: CA-ABBVIE-15K-028-1367689-00

PATIENT
  Sex: Female

DRUGS (1)
  1. HUMIRA [Suspect]
     Active Substance: ADALIMUMAB
     Indication: CROHN^S DISEASE
     Route: 058
     Dates: start: 20130515

REACTIONS (6)
  - Ileus [Unknown]
  - Intestinal stenosis [Unknown]
  - Disability [Unknown]
  - Abdominal adhesions [Unknown]
  - Ileal stenosis [Unknown]
  - Crohn^s disease [Recovered/Resolved]
